FAERS Safety Report 7956197-X (Version None)
Quarter: 2011Q4

REPORT INFORMATION
  Report Type: 
  Country: None (occurrence: None)
  Receive Date: 20111205
  Receipt Date: 20111123
  Transmission Date: 20120403
  Serious: Yes (Hospitalization)
  Sender: FDA-Public Use
  Company Number: IE-US-EMD SERONO, INC.-7091855

PATIENT
  Sex: Male

DRUGS (6)
  1. BACLOFEN [Concomitant]
     Dates: start: 20110201
  2. CALICHEW [Concomitant]
  3. REBIF [Suspect]
     Indication: PRIMARY PROGRESSIVE MULTIPLE SCLEROSIS
     Route: 058
     Dates: start: 20100906
  4. FOLIC ACID [Concomitant]
  5. ZORCLONE [Concomitant]
     Indication: SLEEP DISORDER
  6. BACLOFEN [Concomitant]
     Indication: MUSCLE SPASMS
     Dates: end: 20110201

REACTIONS (3)
  - CHILLS [None]
  - MUSCULAR WEAKNESS [None]
  - MUSCLE SPASMS [None]
